FAERS Safety Report 22106893 (Version 3)
Quarter: 2023Q2

REPORT INFORMATION
  Report Type: Spontaneous
  Country: US (occurrence: US)
  Receive Date: 20230317
  Receipt Date: 20230403
  Transmission Date: 20230721
  Serious: No
  Sender: FDA-Public Use
  Company Number: US-SA-SAC20230315000657

PATIENT
  Age: 23 Year
  Sex: Male
  Weight: 139 kg

DRUGS (4)
  1. DUPIXENT [Suspect]
     Active Substance: DUPILUMAB
     Indication: Dermatitis atopic
     Dosage: 600 MG, 1X
     Route: 058
  2. DUPIXENT [Suspect]
     Active Substance: DUPILUMAB
     Indication: Product used for unknown indication
     Dosage: 300 MG, QOW
     Route: 058
  3. DUPIXENT [Suspect]
     Active Substance: DUPILUMAB
     Indication: Eczema
  4. HEPATITIS B VIRUS VACCINE [Suspect]
     Active Substance: HEPATITIS B VIRUS VACCINE
     Indication: Immunisation

REACTIONS (6)
  - Dry skin [Unknown]
  - Skin fissures [Unknown]
  - Dermatitis atopic [Recovering/Resolving]
  - Eczema [Unknown]
  - Intentional product use issue [Unknown]
  - Rash [Unknown]

NARRATIVE: CASE EVENT DATE: 20230314
